FAERS Safety Report 4317109-3 (Version None)
Quarter: 2004Q1

REPORT INFORMATION
  Report Type: 
  Country: None (occurrence: None)
  Receive Date: 20040312
  Receipt Date: 20040302
  Transmission Date: 20041129
  Serious: Yes (Death, Hospitalization)
  Sender: FDA-Public Use
  Company Number: 2004202194FR

PATIENT
  Age: 76 Year
  Sex: Male

DRUGS (12)
  1. ALDACTONE [Suspect]
     Dosage: 12.5 MG, QD, ORAL
     Route: 048
     Dates: end: 20040112
  2. LOVENOX [Suspect]
     Dosage: 1 DF, QD, SUBCUTANEOUS
     Route: 058
     Dates: start: 20040112, end: 20040120
  3. AUGMENTIN '125' [Suspect]
     Dosage: 1 G, BID, IV
     Route: 042
     Dates: start: 20040112, end: 20040117
  4. COVERSYL (PERINDOPRIL) [Suspect]
     Dosage: 4 MG, QD,
     Dates: end: 20040112
  5. CORDARONE [Suspect]
     Dosage: 200 MG,
     Dates: end: 20040125
  6. CARVEDILOL [Suspect]
     Dosage: 12.5 MG, BID, ORAL
     Route: 048
     Dates: end: 20040112
  7. LEVOTHYROXINE SODIUM [Concomitant]
  8. LORAZEPAM [Concomitant]
  9. DIAFUSOR [Concomitant]
  10. DAFALGAN [Concomitant]
  11. LASIX [Concomitant]
  12. DI-ANTALVIC (DEXTROPROPOXYPHENE HYDROCHLORIDE) [Concomitant]

REACTIONS (12)
  - ASCITES [None]
  - BONE PAIN [None]
  - BRONCHIAL INFECTION [None]
  - COAGULATION FACTOR V LEVEL DECREASED [None]
  - CONJUNCTIVITIS [None]
  - CYTOLYTIC HEPATITIS [None]
  - GENERAL PHYSICAL HEALTH DETERIORATION [None]
  - HEPATIC FAILURE [None]
  - HEPATIC PAIN [None]
  - HYPOTENSION [None]
  - MULTIPLE MYELOMA [None]
  - PROTHROMBIN TIME SHORTENED [None]
